FAERS Safety Report 8505656-X (Version None)
Quarter: 2012Q3

REPORT INFORMATION
  Report Type: 
  Country: None (occurrence: None)
  Receive Date: 20120706
  Receipt Date: 20120706
  Transmission Date: 20120928
  Serious: Yes (Other)
  Sender: FDA-Public Use
  Company Number: None

PATIENT
  Sex: Female
  Weight: 60 kg

DRUGS (4)
  1. DIANE 35 [Suspect]
     Indication: POLYCYSTIC OVARIES
     Dosage: ONE TABLET DAILY FOR 21 DAYS PO
     Route: 048
     Dates: start: 20090101, end: 20110101
  2. DIANE 35 [Suspect]
     Indication: POLYCYSTIC OVARIES
     Dosage: ONE TABLET DAILY FOR 21 DAYS PO
     Route: 048
     Dates: end: 20080101
  3. ANDROCUR [Suspect]
     Indication: ACNE
     Dosage: ONE TABLET DAILY FOR 10 DAYS PO
     Route: 048
     Dates: start: 20090101, end: 20110101
  4. ANDROCUR [Suspect]
     Indication: POLYCYSTIC OVARIES
     Dosage: ONE TABLET DAILY FOR 10 DAYS PO
     Route: 048
     Dates: start: 20090101, end: 20110101

REACTIONS (16)
  - PHOTOSENSITIVITY REACTION [None]
  - EYE IRRITATION [None]
  - SKIN DISCOLOURATION [None]
  - HAEMATOCHEZIA [None]
  - WEIGHT INCREASED [None]
  - OEDEMA PERIPHERAL [None]
  - HEADACHE [None]
  - LIP SWELLING [None]
  - FLUSHING [None]
  - BREAST PAIN [None]
  - SPEECH DISORDER [None]
  - NAUSEA [None]
  - NERVOUSNESS [None]
  - AMNESIA [None]
  - ABDOMINAL PAIN [None]
  - PARAESTHESIA [None]
